FAERS Safety Report 17300596 (Version 2)
Quarter: 2021Q1

REPORT INFORMATION
  Report Type: Spontaneous
  Country: US (occurrence: US)
  Receive Date: 20200122
  Receipt Date: 20210125
  Transmission Date: 20210419
  Serious: No
  Sender: FDA-Public Use
  Company Number: US-ALLERGAN-1945566US

PATIENT
  Age: 63 Year
  Sex: Male

DRUGS (5)
  1. REFRESH DRY EYE THERAPY UNIT DOSE [Concomitant]
  2. UNKNOWN GLAUCOMA MEDICATION [Concomitant]
     Indication: GLAUCOMA
  3. ARTIFICIAL TEARS [Concomitant]
     Active Substance: GLYCERIN\HYPROMELLOSES\POLYETHYLENE GLYCOL 400
     Indication: DRY EYE
     Route: 047
  4. RESTASIS [Suspect]
     Active Substance: CYCLOSPORINE
     Indication: DRY EYE
     Dosage: 2 GTT, BID (AM AND PM)
     Route: 047
     Dates: start: 201912
  5. UNKNOWN BLOODPRESSURE MEDICATION [Concomitant]

REACTIONS (1)
  - Condition aggravated [Not Recovered/Not Resolved]

NARRATIVE: CASE EVENT DATE: 201912
